FAERS Safety Report 4964168-0 (Version None)
Quarter: 2006Q1

REPORT INFORMATION
  Report Type: 
  Country: None (occurrence: None)
  Receive Date: 20060331
  Receipt Date: 20060322
  Transmission Date: 20060701
  Serious: Yes (Other)
  Sender: FDA-Public Use
  Company Number: S06-UKI-01282-01

PATIENT
  Age: 46 Year
  Sex: Male

DRUGS (6)
  1. CITALOPRAM HYDROBROMIDE [Suspect]
     Indication: DEPRESSION
     Dosage: 20 MG QD PO
     Route: 048
     Dates: start: 20060116
  2. ZIDOVUDINE [Concomitant]
  3. TENOFOVIR [Concomitant]
  4. KALETRA [Concomitant]
  5. TRUVADA [Concomitant]
  6. SAQUINAVIR [Concomitant]

REACTIONS (2)
  - ABDOMINAL PAIN UPPER [None]
  - RASH MACULO-PAPULAR [None]
